FAERS Safety Report 23359087 (Version 2)
Quarter: 2024Q1

REPORT INFORMATION
  Report Type: Spontaneous
  Country: GB (occurrence: GB)
  Receive Date: 20240102
  Receipt Date: 20240123
  Transmission Date: 20240410
  Serious: Yes (Death, Other)
  Sender: FDA-Public Use
  Company Number: GB-MHRA-MED-202312151049336050-KQCJS

PATIENT
  Age: 16 Year
  Sex: Female
  Weight: 49 kg

DRUGS (1)
  1. LEVONORGESTREL [Suspect]
     Active Substance: LEVONORGESTREL
     Indication: Heavy menstrual bleeding
     Dates: start: 20231125, end: 20231209

REACTIONS (3)
  - Cerebral venous sinus thrombosis [Fatal]
  - Product use in unapproved indication [Fatal]
  - Product use issue [Fatal]

NARRATIVE: CASE EVENT DATE: 20231125
